FAERS Safety Report 5573884-1 (Version None)
Quarter: 2007Q4

REPORT INFORMATION
  Report Type: 
  Country: None (occurrence: None)
  Receive Date: 20071226
  Receipt Date: 20071214
  Transmission Date: 20080405
  Serious: Yes (Other)
  Sender: FDA-Public Use
  Company Number: US-PFIZER INC-2007106724

PATIENT
  Sex: Male

DRUGS (1)
  1. CHANTIX [Suspect]
     Indication: TOBACCO USER
     Dosage: FREQ:EVERY DAY
     Dates: start: 20071125, end: 20071201

REACTIONS (4)
  - CONSTIPATION [None]
  - PAIN [None]
  - RECTAL HAEMORRHAGE [None]
  - VOMITING [None]
